FAERS Safety Report 6197701-4 (Version None)
Quarter: 2009Q2

REPORT INFORMATION
  Report Type: 
  Country: None (occurrence: None)
  Receive Date: 20090512
  Receipt Date: 20090427
  Transmission Date: 20091009
  Serious: Yes (Death)
  Sender: FDA-Public Use
  Company Number: LIT-002-09-US

PATIENT
  Age: 76 Year

DRUGS (1)
  1. INTRAVENOUS IMMUNE GLOBULIN (MFR UNKNOWN) [Suspect]

REACTIONS (1)
  - ANAPHYLACTIC SHOCK [None]
